FAERS Safety Report 18266773 (Version 2)
Quarter: 2021Q4

REPORT INFORMATION
  Report Type: Spontaneous
  Country: CA (occurrence: CA)
  Receive Date: 20200915
  Receipt Date: 20211231
  Transmission Date: 20220304
  Serious: Yes (Hospitalization, Other)
  Sender: FDA-Public Use
  Company Number: CA-MLMSERVICE-20200901-2461560-1

PATIENT
  Age: 56 Year
  Sex: Female

DRUGS (2)
  1. METHOTREXATE [Interacting]
     Active Substance: METHOTREXATE
     Indication: Dermatitis exfoliative generalised
     Dosage: HIGH DOSE
     Route: 048
  2. FUROSEMIDE [Interacting]
     Active Substance: FUROSEMIDE
     Indication: Cardiac failure congestive

REACTIONS (10)
  - Neutropenia [Recovered/Resolved]
  - Skin ulcer [Recovered/Resolved]
  - Pancytopenia [Recovered/Resolved]
  - Incorrect dose administered [Unknown]
  - Skin necrosis [Recovered/Resolved]
  - Accidental overdose [Unknown]
  - Drug interaction [Unknown]
  - Product communication issue [Unknown]
  - Off label use [Unknown]
  - Accidental exposure to product [Unknown]
